FAERS Safety Report 9383990 (Version 1)
Quarter: 2013Q3

REPORT INFORMATION
  Report Type: Spontaneous
  Country: US (occurrence: US)
  Receive Date: 20130705
  Receipt Date: 20130705
  Transmission Date: 20140515
  Serious: No
  Sender: FDA-Public Use
  Company Number: US-B.I. PHARMACEUTICALS,INC./RIDGEFIELD-2013-BI-19156BP

PATIENT
  Age: 65 Year
  Sex: Female

DRUGS (2)
  1. COMBIVENT [Suspect]
     Indication: CHRONIC OBSTRUCTIVE PULMONARY DISEASE
     Dosage: STRENGTH-20MCG/100MCG:DAILY DOSE-80MCG/400MCG
     Route: 055
     Dates: start: 20130607, end: 20130611
  2. COMBIVENT [Suspect]
     Dosage: STRENGTH-20MCG/100MCG:DAILY DOSE-80MCG/400MCG
     Route: 055
     Dates: start: 20130612

REACTIONS (1)
  - Heart rate increased [Recovered/Resolved]
